FAERS Safety Report 9182807 (Version 1)
Quarter: 2013Q1

REPORT INFORMATION
  Report Type: Report from Study
  Country: DE (occurrence: DE)
  Receive Date: 20130322
  Receipt Date: 20130322
  Transmission Date: 20140127
  Serious: Yes (Hospitalization)
  Sender: FDA-Public Use
  Company Number: DE-009507513-1303DEU010191

PATIENT
  Age: 44 Year
  Sex: Male
  Weight: 82 kg

DRUGS (4)
  1. VICTRELIS [Suspect]
     Indication: CHRONIC HEPATITIS C
     Dosage: DAILY DOSE 2400MG, QD
     Route: 048
     Dates: start: 20110825
  2. REBETOL [Suspect]
     Indication: CHRONIC HEPATITIS C
     Dosage: DAILY DOSE 1200MG, QD
     Route: 048
     Dates: start: 20110728
  3. PEGINTERFERON ALFA-2A [Suspect]
     Indication: CHRONIC HEPATITIS C
     Dosage: 180 MICROGRAM, QW
     Route: 058
     Dates: start: 20110728
  4. CITALOPRAM [Concomitant]
     Indication: DEPRESSION
     Dosage: 20 DF, UNK
     Route: 048
     Dates: start: 20110217

REACTIONS (1)
  - Anal haemorrhage [Not Recovered/Not Resolved]
